FAERS Safety Report 17665124 (Version 1)
Quarter: 2020Q2

REPORT INFORMATION
  Report Type: Spontaneous
  Country: CN (occurrence: CN)
  Receive Date: 20200414
  Receipt Date: 20200414
  Transmission Date: 20200713
  Serious: Yes (Other)
  Sender: FDA-Public Use
  Company Number: CN-PFIZER INC-2020149031

PATIENT
  Age: 20 Year
  Sex: Female

DRUGS (1)
  1. MISOPROSTOL. [Suspect]
     Active Substance: MISOPROSTOL
     Indication: UTERINE CONTRACTIONS ABNORMAL
     Dosage: 0.2 MG, 1X/DAY
     Route: 060
     Dates: start: 20200330

REACTIONS (3)
  - Drug ineffective for unapproved indication [Unknown]
  - Off label use [Unknown]
  - Haemorrhage [Unknown]

NARRATIVE: CASE EVENT DATE: 20200330
